FAERS Safety Report 11897734 (Version 1)
Quarter: 2016Q1

REPORT INFORMATION
  Report Type: Spontaneous
  Country: US (occurrence: None)
  Receive Date: 20160106
  Receipt Date: 20160106
  Transmission Date: 20160526
  Serious: No
  Sender: FDA-Public Use
  Company Number: None

PATIENT
  Age: 64 Year
  Sex: Female

DRUGS (2)
  1. PLEXUS CFSAN [Suspect]
     Active Substance: DIETARY SUPPLEMENT
  2. GLIPIZIDE. [Suspect]
     Active Substance: GLIPIZIDE

REACTIONS (4)
  - Blood glucose increased [None]
  - Myocardial infarction [None]
  - Drug dose omission [None]
  - Haematochezia [None]
